FAERS Safety Report 21552230 (Version 15)
Quarter: 2024Q2

REPORT INFORMATION
  Report Type: Spontaneous
  Country: CA (occurrence: CA)
  Receive Date: 20221104
  Receipt Date: 20240508
  Transmission Date: 20240716
  Serious: Yes (Hospitalization, Other)
  Sender: FDA-Public Use
  Company Number: CA-CELLTRION INC.-2022CA017421

PATIENT

DRUGS (17)
  1. INFLECTRA [Suspect]
     Active Substance: INFLIXIMAB-DYYB
     Indication: Crohn^s disease
     Dosage: 10 MG/KG, WEEK 0, 2, 6 THEN EVERY 8 WEEKS (HOSPITAL START)
     Route: 042
     Dates: start: 20221007
  2. INFLECTRA [Suspect]
     Active Substance: INFLIXIMAB-DYYB
     Dosage: 10 MG/KG, WEEK 0, 2, 6 THEN EVERY 8 WEEKS
     Route: 042
     Dates: start: 20221025
  3. INFLECTRA [Suspect]
     Active Substance: INFLIXIMAB-DYYB
     Dosage: 10 MG/KG, WEEK 0, 2, 6 THEN EVERY 8 WEEKS
     Route: 042
     Dates: start: 20221123
  4. INFLECTRA [Suspect]
     Active Substance: INFLIXIMAB-DYYB
     Dosage: 700 MG (10 MG/KG), EVERY 8 WEEKS
     Route: 042
     Dates: start: 20230118
  5. INFLECTRA [Suspect]
     Active Substance: INFLIXIMAB-DYYB
     Dosage: 720 MG (10 MG/KG), EVERY 8 WEEKS
     Route: 042
     Dates: start: 20230316
  6. INFLECTRA [Suspect]
     Active Substance: INFLIXIMAB-DYYB
     Dosage: 10 MG/KG, EVERY 8 WEEKS
     Route: 042
     Dates: start: 20231026
  7. INFLECTRA [Suspect]
     Active Substance: INFLIXIMAB-DYYB
     Dosage: 10 MG/KG, EVERY 8 WEEKS
     Route: 042
     Dates: start: 20231026
  8. INFLECTRA [Suspect]
     Active Substance: INFLIXIMAB-DYYB
     Dosage: 525 MG AFTER 10 WEEKS, (PRESCRIBED EVERY 8 WEEKS)
     Route: 042
     Dates: start: 20240104
  9. INFLECTRA [Suspect]
     Active Substance: INFLIXIMAB-DYYB
     Dosage: 700 MG, (10 MG/KG), EVERY 6 WEEKS, REINDUCTION WEEK 0, 2, 6 THEN MAINTENANCE EVERY 6 WEEKS
     Route: 042
     Dates: start: 20240320
  10. AMITRIPTYLINE [Concomitant]
     Active Substance: AMITRIPTYLINE
     Dosage: UNK
  11. CALCIUM [Concomitant]
     Active Substance: CALCIUM
     Dosage: 1 DF
     Route: 065
  12. LYRICA [Concomitant]
     Active Substance: PREGABALIN
     Dosage: UNK
  13. PREDNISONE [Concomitant]
     Active Substance: PREDNISONE
     Dosage: 1 DF, PRESCRIBED X 9 WEEKS
     Dates: end: 202212
  14. QUETIAPINE FUMARATE [Concomitant]
     Active Substance: QUETIAPINE FUMARATE
     Dosage: UNK
  15. QUETIAPINE [Concomitant]
     Active Substance: QUETIAPINE
     Dosage: UNK
  16. REMICADE [Concomitant]
     Active Substance: INFLIXIMAB
     Dosage: UNK
     Dates: start: 20240229
  17. CHOLECALCIFEROL [Concomitant]
     Active Substance: CHOLECALCIFEROL
     Dosage: UNK

REACTIONS (18)
  - Pneumonia [Unknown]
  - Cytomegalovirus infection [Not Recovered/Not Resolved]
  - Colitis ulcerative [Unknown]
  - Condition aggravated [Recovering/Resolving]
  - Pyoderma [Recovered/Resolved]
  - Ulcer [Recovered/Resolved]
  - Alopecia [Not Recovered/Not Resolved]
  - Pruritus [Not Recovered/Not Resolved]
  - Asthenia [Unknown]
  - Myalgia [Not Recovered/Not Resolved]
  - Arthralgia [Recovered/Resolved]
  - Fatigue [Unknown]
  - Insomnia [Unknown]
  - Off label use [Unknown]
  - Off label use [Unknown]
  - Off label use [Unknown]
  - Intentional product use issue [Unknown]
  - Inappropriate schedule of product administration [Unknown]

NARRATIVE: CASE EVENT DATE: 20220101
